FAERS Safety Report 9998957 (Version 1)
Quarter: 2014Q1

REPORT INFORMATION
  Report Type: Report from Study
  Country: US (occurrence: US)
  Receive Date: 20140312
  Receipt Date: 20140312
  Transmission Date: 20141002
  Serious: Yes (Life-Threatening, Hospitalization)
  Sender: FDA-Public Use
  Company Number: US-ALEXION-A201400688

PATIENT
  Age: 23 Year
  Sex: Male
  Weight: 50 kg

DRUGS (10)
  1. ECULIZUMAB [Suspect]
     Indication: HAEMOLYTIC URAEMIC SYNDROME
     Dosage: UNK
     Route: 042
  2. ELAVIL                             /00002202/ [Concomitant]
     Indication: SLEEP DISORDER
     Dosage: 25 MG, HS PRN
     Route: 048
  3. ASPIRIN [Concomitant]
     Indication: PRODUCT USED FOR UNKNOWN INDICATION
     Dosage: 81 MG, QD
     Route: 048
  4. ZITHROMAX [Concomitant]
     Indication: PRODUCT USED FOR UNKNOWN INDICATION
     Dosage: 250 MG, TAKE 2 TABLETS ON DAY 1, THEN 1 TABLET DAILY UNTIL GONE
     Route: 048
  5. BISCOLAX [Concomitant]
     Indication: PRODUCT USED FOR UNKNOWN INDICATION
     Dosage: 10 MG QOD, PRN
     Route: 054
  6. COPPER [Concomitant]
     Indication: PRODUCT USED FOR UNKNOWN INDICATION
     Dosage: 2 MG, QD
     Route: 048
  7. FLEXERIL                           /00428402/ [Concomitant]
     Indication: PRODUCT USED FOR UNKNOWN INDICATION
     Dosage: 10 MG, TID PRN
     Route: 048
  8. BENADRYL                           /00000402/ [Concomitant]
     Indication: PRURITUS
     Dosage: 25 MG, Q6H PRN
     Route: 048
  9. LOMOTIL                            /00034001/ [Concomitant]
     Indication: DIARRHOEA
     Dosage: 2.5-0.025 MG, 1 CAPSULE Q6H PRN
     Route: 048
  10. DEPAKOTE [Concomitant]
     Indication: PRODUCT USED FOR UNKNOWN INDICATION
     Dosage: 250 MG, UNK

REACTIONS (2)
  - Pancreatitis [Recovered/Resolved]
  - Tachycardia [Recovered/Resolved]
